FAERS Safety Report 13736816 (Version 2)
Quarter: 2017Q3

REPORT INFORMATION
  Report Type: Spontaneous
  Country: SE (occurrence: SE)
  Receive Date: 20170710
  Receipt Date: 20170714
  Transmission Date: 20171127
  Serious: Yes (Hospitalization)
  Sender: FDA-Public Use
  Company Number: SE-SA-2017SA120615

PATIENT
  Age: 35 Year
  Sex: Female

DRUGS (8)
  1. GESTRINA [Concomitant]
  2. CITALOPRAM [Concomitant]
     Active Substance: CITALOPRAM HYDROBROMIDE
     Route: 065
  3. VITAMIN B6 [Concomitant]
     Active Substance: PYRIDOXINE HYDROCHLORIDE
     Route: 065
     Dates: start: 20170125, end: 20170125
  4. TIBINIDE [Concomitant]
     Active Substance: ISONIAZID
     Route: 065
     Dates: start: 20170125, end: 20170127
  5. TIBINIDE [Concomitant]
     Active Substance: ISONIAZID
     Route: 065
     Dates: start: 20161227, end: 20170111
  6. RIFAMPICIN [Suspect]
     Active Substance: RIFAMPIN
     Indication: LATENT TUBERCULOSIS
     Route: 065
     Dates: start: 20161227, end: 20170111
  7. RIFAMPICIN [Suspect]
     Active Substance: RIFAMPIN
     Indication: LATENT TUBERCULOSIS
     Route: 065
     Dates: start: 20170125, end: 20170127
  8. RIFAMPICIN [Suspect]
     Active Substance: RIFAMPIN
     Indication: LATENT TUBERCULOSIS
     Route: 065
     Dates: start: 20170328, end: 20170328

REACTIONS (2)
  - Myalgia [Recovered/Resolved]
  - Arthralgia [Recovered/Resolved]

NARRATIVE: CASE EVENT DATE: 20170127
